FAERS Safety Report 8914533 (Version 1)
Quarter: 2012Q4

REPORT INFORMATION
  Report Type: 
  Country: US (occurrence: US)
  Receive Date: 20121119
  Receipt Date: 20121119
  Transmission Date: 20130627
  Serious: Yes (Other)
  Sender: FDA-Public Use
  Company Number: US-SANOFI-AVENTIS-2012SA084141

PATIENT
  Age: 62 Year
  Sex: Female

DRUGS (4)
  1. PAROXETINE HYDROCHLORIDE [Suspect]
     Indication: DEPRESSION
     Dosage: patient took lot of pills
     Route: 065
  2. PAROXETINE HYDROCHLORIDE [Interacting]
     Indication: ANXIETY
     Dosage: patient took lot of pills
     Route: 065
  3. ZOLPIDEM TARTRATE [Interacting]
     Indication: INSOMNIA
     Dosage: patient took 2-3 pills of 10 mg instead of 1
     Route: 065
  4. ZOLPIDEM TARTRATE [Interacting]
     Indication: INSOMNIA
     Route: 065

REACTIONS (6)
  - Homicide [Unknown]
  - Inappropriate schedule of drug administration [Unknown]
  - Drug interaction [Unknown]
  - Abnormal behaviour [Unknown]
  - Speech disorder [Unknown]
  - Delirium [Unknown]
